FAERS Safety Report 9507221 (Version 2)
Quarter: 2013Q3

REPORT INFORMATION
  Report Type: Spontaneous
  Country: CH (occurrence: CH)
  Receive Date: 20130909
  Receipt Date: 20130916
  Transmission Date: 20140515
  Serious: Yes (Other)
  Sender: FDA-Public Use
  Company Number: PHHY2013CH098469

PATIENT
  Age: 86 Year
  Sex: Female

DRUGS (34)
  1. ZOMETA [Suspect]
     Indication: SPINAL FRACTURE
     Dosage: UNK UKN, UNK
     Route: 042
     Dates: start: 20050912, end: 20061004
  2. ZOMETA [Suspect]
     Dosage: UNK UKN, UNK
     Dates: start: 20130408
  3. ZOMETA [Suspect]
     Dosage: UNK UKN, UNK
     Dates: start: 20130506
  4. ZOMETA [Suspect]
     Dosage: UNK UKN, UNK
     Dates: start: 20130604
  5. ZOMETA [Suspect]
     Dosage: UNK UKN, UNK
     Dates: start: 20130702
  6. RITALINE [Concomitant]
     Dosage: 10 MG (12-15 TABLETS PER DAY)
  7. VOLTAREN ^NOVARTIS^ [Concomitant]
     Dosage: 100 MG, PER DAY
  8. DIOVAN [Concomitant]
     Dosage: 40 MG, QD
  9. TAMOXIFEN [Concomitant]
     Dosage: 20 MG, QD
  10. ITINEROL B6 [Concomitant]
     Dosage: 3 PER DAY
  11. LEXOTANIL [Concomitant]
     Dosage: 1.5 MG, QD
  12. PRIMPERAN [Concomitant]
     Dosage: 3 UKN, PER DAY
  13. DAFALGAN [Concomitant]
     Dosage: 1 G, 3/D
  14. TRAMAL [Concomitant]
     Dosage: 30 DRP, 3-4/D
  15. SYMFONA N [Concomitant]
     Dosage: 1-0-1
  16. PADMA [Concomitant]
     Dosage: 1-0-1
  17. FLATULEX                           /01711401/ [Concomitant]
     Dosage: 2 DF, TID
  18. BETASERC [Concomitant]
     Indication: VERTIGO
     Dosage: 1/2 TABL, 2/D
  19. SEDATIF PC [Concomitant]
     Indication: SEDATION
     Dosage: 2 DF, 2-3 TABLETS PER DAY
  20. MAGNESIUM DIASPORAL [Concomitant]
     Dosage: 375 UKN, 0-0-2
  21. SURMONTIL                               /UNK/ [Concomitant]
     Dosage: 175-200 MG IN THE EVENING
  22. VIGAMOX [Concomitant]
     Dosage: 1 DRP, 0-0-1
  23. NACL [Concomitant]
     Dosage: 1 DRP, 1-0-1
  24. IBUPROFEN [Concomitant]
     Indication: BACK PAIN
     Dosage: UNK UKN, UNK
  25. IBUPROFEN [Concomitant]
     Indication: PAIN IN EXTREMITY
  26. DYNAMISAN [Concomitant]
     Dosage: 1 PER DAY
  27. EISEN                              /02996401/ [Concomitant]
     Dosage: 2 PER DAY
  28. KNOBLAUCH [Concomitant]
     Dosage: 2 PER DAY
  29. VITAMIN B12 [Concomitant]
     Dosage: 1 PER DAY
  30. VITAMIN B COMPLEX [Concomitant]
     Dosage: 1 PER DAY
  31. CALCIFEROL [Concomitant]
     Dosage: 15 DRP, 1 PER WEEK
  32. CALCIUM CARBONATE [Concomitant]
  33. OPTALIDON                          /00293501/ [Concomitant]
  34. OMEGA//OMEPRAZOLE [Concomitant]

REACTIONS (2)
  - Metastases to bone [Unknown]
  - Tooth loss [Unknown]
